FAERS Safety Report 16892014 (Version 2)
Quarter: 2019Q4

REPORT INFORMATION
  Report Type: Spontaneous
  Country: US (occurrence: US)
  Receive Date: 20191007
  Receipt Date: 20191127
  Transmission Date: 20200122
  Serious: No
  Sender: FDA-Public Use
  Company Number: US-BAUSCH-BL-2019-024749

PATIENT
  Sex: Female

DRUGS (1)
  1. OSMOPREP [Suspect]
     Active Substance: SODIUM PHOSPHATE, DIBASIC, ANHYDROUS\SODIUM PHOSPHATE, MONOBASIC, MONOHYDRATE
     Indication: BOWEL PREPARATION
     Dosage: ABOUT 10 YEARS AGO PRIOR TO COLONOSCOPY
     Route: 048

REACTIONS (3)
  - Nausea [Recovered/Resolved]
  - Product taste abnormal [Unknown]
  - Product use complaint [Unknown]
